FAERS Safety Report 9566486 (Version 6)
Quarter: 2013Q4

REPORT INFORMATION
  Report Type: Spontaneous
  Country: US (occurrence: US)
  Receive Date: 20130930
  Receipt Date: 20131125
  Transmission Date: 20140711
  Serious: Yes (Hospitalization)
  Sender: FDA-Public Use
  Company Number: US-009507513-1309USA010362

PATIENT
  Age: 12 Year
  Sex: Male
  Weight: 48.53 kg

DRUGS (1)
  1. CELESTONE SOLUSPAN [Suspect]
     Indication: DERMATITIS CONTACT
     Dosage: UNK
     Route: 030
     Dates: start: 20130909

REACTIONS (1)
  - Conversion disorder [Unknown]
